FAERS Safety Report 7659063-2 (Version None)
Quarter: 2011Q3

REPORT INFORMATION
  Report Type: 
  Country: None (occurrence: None)
  Receive Date: 20110805
  Receipt Date: 20110804
  Transmission Date: 20111222
  Serious: Yes (Hospitalization)
  Sender: FDA-Public Use
  Company Number: RO-PFIZER INC-2011179217

PATIENT
  Age: 62 Year
  Sex: Male

DRUGS (3)
  1. PANTOPRAZOLE [Concomitant]
     Indication: DYSPEPSIA
     Dosage: UNK
  2. ATORVASTATIN CALCIUM [Suspect]
     Indication: HYPERCHOLESTEROLAEMIA
     Dosage: 20 MG, 1X/DAY
     Route: 048
     Dates: start: 20110802, end: 20110803
  3. RANITIDINE [Concomitant]
     Indication: DYSPEPSIA
     Dosage: UNK

REACTIONS (1)
  - PANCREATITIS ACUTE [None]
